FAERS Safety Report 4604248-2 (Version None)
Quarter: 2005Q1

REPORT INFORMATION
  Report Type: 
  Country: None (occurrence: None)
  Receive Date: 20050308
  Receipt Date: 20050222
  Transmission Date: 20050727
  Serious: Yes (Death, Hospitalization)
  Sender: FDA-Public Use
  Company Number: CERZ-10802

PATIENT
  Age: 30 Year
  Sex: Male

DRUGS (1)
  1. CEREZYME [Suspect]
     Indication: GAUCHER'S DISEASE
     Dosage: 6400 UNITS Q2WKS IV
     Route: 042
     Dates: start: 19970509, end: 20050201

REACTIONS (1)
  - DYSPNOEA [None]
